FAERS Safety Report 9476914 (Version 1)
Quarter: 2013Q3

REPORT INFORMATION
  Report Type: Spontaneous
  Country: JP (occurrence: JP)
  Receive Date: 20130826
  Receipt Date: 20130826
  Transmission Date: 20140515
  Serious: Yes (Other)
  Sender: FDA-Public Use
  Company Number: JP-GLAXOSMITHKLINE-B0917526A

PATIENT
  Age: 64 Year
  Sex: Male

DRUGS (3)
  1. LAMICTAL [Suspect]
     Indication: BIPOLAR DISORDER
     Dosage: 100MG TWICE PER DAY
     Route: 048
     Dates: start: 20120921, end: 201210
  2. SODIUM VALPROATE [Concomitant]
     Route: 048
  3. UNKNOWN DRUG [Concomitant]
     Route: 065

REACTIONS (1)
  - Pancreatitis acute [Unknown]
